FAERS Safety Report 8261891-X (Version None)
Quarter: 2012Q2

REPORT INFORMATION
  Report Type: 
  Country: None (occurrence: None)
  Receive Date: 20120405
  Receipt Date: 20120327
  Transmission Date: 20120825
  Serious: Yes (Hospitalization)
  Sender: FDA-Public Use
  Company Number: JP-ASTRAZENECA-2012SE21495

PATIENT
  Age: 54 Year
  Sex: Female
  Weight: 51 kg

DRUGS (4)
  1. UFT [Suspect]
     Route: 048
     Dates: start: 20120213, end: 20120312
  2. ASPARA-CA [Concomitant]
     Route: 048
     Dates: start: 20120213, end: 20120326
  3. ALFAROL [Concomitant]
     Route: 048
     Dates: start: 20120213, end: 20120326
  4. ARIMIDEX [Suspect]
     Indication: BREAST CANCER
     Route: 048
     Dates: start: 20120213, end: 20120326

REACTIONS (1)
  - LIVER DISORDER [None]
